FAERS Safety Report 9571928 (Version 4)
Quarter: 2014Q1

REPORT INFORMATION
  Report Type: Spontaneous
  Country: CA (occurrence: CA)
  Receive Date: 20131001
  Receipt Date: 20140218
  Transmission Date: 20141002
  Serious: Yes (Hospitalization)
  Sender: FDA-Public Use
  Company Number: CA-ROCHE-1282962

PATIENT
  Age: 55 Year
  Sex: Female

DRUGS (5)
  1. XOLAIR [Suspect]
     Indication: ASTHMA
     Route: 058
     Dates: start: 20130828
  2. XOLAIR [Suspect]
     Route: 058
     Dates: start: 20131023, end: 20131023
  3. ADVAIR [Concomitant]
     Route: 065
  4. SINGULAIR [Concomitant]
  5. VENTOLINE [Concomitant]

REACTIONS (5)
  - Respiratory disorder [Unknown]
  - Asthma [Recovered/Resolved]
  - Pneumonia [Not Recovered/Not Resolved]
  - Heart rate irregular [Unknown]
  - Nasal polyps [Unknown]
